FAERS Safety Report 16245636 (Version 4)
Quarter: 2019Q2

REPORT INFORMATION
  Report Type: Report from Study
  Country: US (occurrence: US)
  Receive Date: 20190426
  Receipt Date: 20190626
  Transmission Date: 20190711
  Serious: Yes (Other)
  Sender: FDA-Public Use
  Company Number: PHEH2019US017941

PATIENT
  Sex: Male

DRUGS (1)
  1. DUREZOL [Suspect]
     Active Substance: DIFLUPREDNATE
     Indication: UVEITIS
     Dosage: UNK
     Route: 065

REACTIONS (3)
  - Acalculia [Unknown]
  - Hypertension [Unknown]
  - Cerebrovascular accident [Recovering/Resolving]
